FAERS Safety Report 7565575-2 (Version None)
Quarter: 2011Q2

REPORT INFORMATION
  Report Type: 
  Country: None (occurrence: None)
  Receive Date: 20110615
  Receipt Date: 20110610
  Transmission Date: 20111010
  Serious: Yes (Hospitalization)
  Sender: FDA-Public Use
  Company Number: CIP11000798

PATIENT
  Age: 91 Year
  Sex: Female

DRUGS (8)
  1. CALCIUM + VITAMIN D (CALCIUM, COLECALCIFEROL) [Concomitant]
  2. ADALAT [Concomitant]
  3. OLMESARTAN MEDOXOMIL [Concomitant]
  4. ACTONEL [Suspect]
     Indication: OSTEOPOROSIS
     Dosage: 2.5 MG DAILY, ORAL
     Route: 048
     Dates: start: 20080305, end: 20110308
  5. BISOPROLOL FUMARATE [Concomitant]
  6. DOXAZOSIN MESYLATE [Concomitant]
  7. PRAVASTATIN [Concomitant]
  8. FLUITRAN (TRICHLORMETHIAZIDE) [Concomitant]

REACTIONS (5)
  - PUNCTURE SITE HAEMORRHAGE [None]
  - SQUAMOUS CELL CARCINOMA OF SKIN [None]
  - HAEMATOMA [None]
  - CORONARY ARTERY STENOSIS [None]
  - POST PROCEDURAL COMPLICATION [None]
